FAERS Safety Report 16362864 (Version 1)
Quarter: 2019Q2

REPORT INFORMATION
  Report Type: Spontaneous
  Country: FR (occurrence: FR)
  Receive Date: 20190528
  Receipt Date: 20190528
  Transmission Date: 20190711
  Serious: Yes (Other)
  Sender: FDA-Public Use
  Company Number: FR-BAYER-2019-099448

PATIENT
  Age: 65 Year
  Sex: Male

DRUGS (3)
  1. NEXAVAR [Suspect]
     Active Substance: SORAFENIB
     Indication: HEPATOCELLULAR CARCINOMA
     Dosage: 800 MG DAILY
     Dates: start: 201801, end: 2018
  2. NEXAVAR [Suspect]
     Active Substance: SORAFENIB
     Indication: HEPATOCELLULAR CARCINOMA
     Dosage: 400 MG DAILY
     Dates: start: 2018, end: 201804
  3. NEXAVAR [Suspect]
     Active Substance: SORAFENIB
     Indication: HEPATOCELLULAR CARCINOMA
     Dosage: 600 MG DAILY
     Dates: start: 201807, end: 2019

REACTIONS (8)
  - Hepatocellular carcinoma [None]
  - Asthenia [None]
  - Palmar-plantar erythrodysaesthesia syndrome [None]
  - Weight decreased [None]
  - Metastasis [None]
  - Decreased appetite [None]
  - Diarrhoea [None]
  - Portal vein thrombosis [None]

NARRATIVE: CASE EVENT DATE: 2018
